FAERS Safety Report 12304584 (Version 4)
Quarter: 2018Q3

REPORT INFORMATION
  Report Type: Report from Study
  Country: BR (occurrence: BR)
  Receive Date: 20160426
  Receipt Date: 20180831
  Transmission Date: 20181010
  Serious: Yes (Hospitalization, Other)
  Sender: FDA-Public Use
  Company Number: PHHY2015BR086111

PATIENT
  Sex: Female
  Weight: 82 kg

DRUGS (4)
  1. PREDNISONE. [Concomitant]
     Active Substance: PREDNISONE
     Indication: PRODUCT USED FOR UNKNOWN INDICATION
     Dosage: UNK
     Route: 065
  2. SANDOSTATIN LAR DEPOT [Suspect]
     Active Substance: OCTREOTIDE ACETATE
     Indication: ACROMEGALY
     Dosage: 40 MG, QMO, (2 AMPOULES)
     Route: 030
     Dates: start: 2012
  3. CABERGOLINE. [Concomitant]
     Active Substance: CABERGOLINE
     Indication: PRODUCT USED FOR UNKNOWN INDICATION
     Dosage: UNK
     Route: 065
  4. SANDOSTATIN LAR DEPOT [Suspect]
     Active Substance: OCTREOTIDE ACETATE
     Dosage: 40 MG, QMO (2 AMPOULES OF 20 MG) EVERY 28 DAYS
     Route: 030

REACTIONS (13)
  - Pain [Recovered/Resolved]
  - Pyrexia [Recovered/Resolved]
  - Weight fluctuation [Unknown]
  - Blood glucose abnormal [Unknown]
  - Inappropriate schedule of drug administration [Unknown]
  - Hypotension [Unknown]
  - Dengue fever [Unknown]
  - Application site mass [Not Recovered/Not Resolved]
  - Anaemia [Unknown]
  - Malaise [Recovered/Resolved]
  - Headache [Recovered/Resolved]
  - Weight decreased [Unknown]
  - Hypertension [Recovered/Resolved]
